FAERS Safety Report 9144066 (Version 2)
Quarter: 2013Q1

REPORT INFORMATION
  Report Type: Spontaneous
  Country: US (occurrence: US)
  Receive Date: 20130306
  Receipt Date: 20130328
  Transmission Date: 20140127
  Serious: Yes (Other)
  Sender: FDA-Public Use
  Company Number: US-PFIZER INC-2013078202

PATIENT
  Age: 65 Year
  Sex: Female

DRUGS (3)
  1. LYRICA [Suspect]
     Dosage: 75 MG, 2X/DAY
     Route: 048
  2. TRILEPTAL [Suspect]
     Dosage: 300 MG, (1 Q AM 2 QHS EVEN DAYS)
  3. TRILEPTAL [Suspect]
     Dosage: 300 MG, (1 1/2 AM 2 QHS ODD DAYS)

REACTIONS (2)
  - Brain neoplasm [Unknown]
  - Neoplasm recurrence [Unknown]
